FAERS Safety Report 22026415 (Version 2)
Quarter: 2023Q4

REPORT INFORMATION
  Report Type: Other
  Country: IN (occurrence: None)
  Receive Date: 20230223
  Receipt Date: 20231117
  Transmission Date: 20240110
  Serious: No
  Sender: FDA-Public Use
  Company Number: IN-ROCHE-3277815

PATIENT
  Age: 77 Year
  Sex: Male

DRUGS (1)
  1. TECENTRIQ [Suspect]
     Active Substance: ATEZOLIZUMAB
     Indication: Hepatocellular carcinoma
     Route: 041
     Dates: start: 20221019, end: 20221222

REACTIONS (3)
  - Off label use [Unknown]
  - No adverse event [Unknown]
  - Disease progression [Unknown]

NARRATIVE: CASE EVENT DATE: 20230220
